FAERS Safety Report 12967772 (Version 2)
Quarter: 2017Q1

REPORT INFORMATION
  Report Type: Spontaneous
  Country: US (occurrence: US)
  Receive Date: 20161123
  Receipt Date: 20170116
  Transmission Date: 20170428
  Serious: No
  Sender: FDA-Public Use
  Company Number: US-PFIZER INC-2016538178

PATIENT
  Age: 69 Year
  Sex: Female

DRUGS (8)
  1. LYRICA [Interacting]
     Active Substance: PREGABALIN
     Dosage: 75 MG, 2X/DAY  (TAKE 1 CAPSULE BY MOUTH 2 TIMES)
     Route: 048
     Dates: start: 20161115
  2. NEXIUM [Concomitant]
     Active Substance: ESOMEPRAZOLE MAGNESIUM
     Dosage: 40 MG, DAILY, (TAKE ONE CAPSULE BY MOUTH EVERY DAY)
     Route: 048
  3. PHENERGAN [Concomitant]
     Active Substance: PROMETHAZINE HYDROCHLORIDE
     Indication: NAUSEA
     Dosage: 25 MG, AS NEEDED, (TAKE 1 TAB BY MOUTH EVERY 6 HOURS AS NEEDED)
     Route: 048
  4. DILANTIN [Suspect]
     Active Substance: PHENYTOIN
     Indication: SEIZURE
     Dosage: 100 MG, 2 CAPS X 2 DAYS THEN THE 3RD DAY 3 CAPS ALTERNATING
     Dates: start: 20161115
  5. DILANTIN [Interacting]
     Active Substance: PHENYTOIN
     Dosage: UNK UNK, CYCLIC (300MG ON DAY ONE, 300 MG ON DAY 2, THEN 200 MG ON DAY THREE THEN REPEAT CYCLE)
     Route: 048
     Dates: start: 20100513
  6. BIAXIN [Interacting]
     Active Substance: CLARITHROMYCIN
     Dosage: UNK
  7. ATIVAN [Concomitant]
     Active Substance: LORAZEPAM
     Dosage: 1 MG, 2X/DAY
     Route: 048
  8. COUMADINE [Concomitant]
     Active Substance: WARFARIN SODIUM
     Dosage: 4 MG, DAILY, (TAKE ONE TABLET BY MOUTH EVERY DAY)
     Route: 048

REACTIONS (1)
  - Drug interaction [Unknown]
